FAERS Safety Report 24932336 (Version 1)
Quarter: 2025Q1

REPORT INFORMATION
  Report Type: Report from Study
  Country: US (occurrence: US)
  Receive Date: 20250205
  Receipt Date: 20250205
  Transmission Date: 20250409
  Serious: No
  Sender: EXELIXIS
  Company Number: US-EXELIXIS-CABO-24080344

PATIENT
  Age: 69 Year
  Sex: Male
  Weight: 80.286 kg

DRUGS (3)
  1. CABOMETYX [Suspect]
     Active Substance: CABOZANTINIB S-MALATE
     Indication: Renal cancer
     Dosage: 60 MG, QD
     Route: 048
     Dates: start: 20240711
  2. CABOMETYX [Suspect]
     Active Substance: CABOZANTINIB S-MALATE
     Dosage: 40 MG, QD
     Route: 048
  3. INLYTA [Suspect]
     Active Substance: AXITINIB
     Indication: Renal cancer

REACTIONS (10)
  - Glossodynia [Recovering/Resolving]
  - Weight decreased [Recovering/Resolving]
  - Fatigue [Recovering/Resolving]
  - Asthenia [Recovering/Resolving]
  - Taste disorder [Recovering/Resolving]
  - Blood pressure increased [Recovered/Resolved]
  - Feeding disorder [Recovering/Resolving]
  - Eye infection [Unknown]
  - Blood test abnormal [Unknown]
  - Inappropriate schedule of product administration [Unknown]

NARRATIVE: CASE EVENT DATE: 20240918
